FAERS Safety Report 8042728-0 (Version None)
Quarter: 2012Q1

REPORT INFORMATION
  Report Type: 
  Country: None (occurrence: None)
  Receive Date: 20120112
  Receipt Date: 20120106
  Transmission Date: 20120608
  Serious: Yes (Hospitalization)
  Sender: FDA-Public Use
  Company Number: US-BAYER-2011-040536

PATIENT
  Age: 19 Year
  Sex: Female
  Weight: 63.492 kg

DRUGS (10)
  1. DROSPIRENONE AND ETHINYL ESTRADIOL [Suspect]
     Indication: ACNE
     Dosage: UNK
     Dates: start: 20080301, end: 20090701
  2. SULFACETAMIDE [Concomitant]
     Indication: ACNE
     Dosage: UNK UNK, BID
  3. DEXEDRINE [Concomitant]
     Dosage: UNK
     Dates: start: 20090625
  4. DROSPIRENONE AND ETHINYL ESTRADIOL [Suspect]
     Indication: PREMENSTRUAL SYNDROME
  5. YASMIN [Suspect]
     Indication: PREMENSTRUAL SYNDROME
  6. OMEPRAZOLE [Concomitant]
  7. YASMIN [Suspect]
     Indication: ACNE
     Dosage: UNK
     Dates: start: 20080301, end: 20090701
  8. ALBUTEROL INHALER [Concomitant]
     Indication: WHEEZING
     Dosage: UNK UNK, Q4HR
     Route: 045
     Dates: start: 20090625
  9. IBUPROFEN [Concomitant]
     Indication: HEADACHE
     Dosage: UNK UNK, PRN
  10. MUSCLE RELAXER [Concomitant]
     Dosage: UNK
     Dates: start: 20090625

REACTIONS (4)
  - GENERALISED ANXIETY DISORDER [None]
  - CHOLECYSTITIS CHRONIC [None]
  - PAIN [None]
  - GALLBLADDER DISORDER [None]
